FAERS Safety Report 14672599 (Version 2)
Quarter: 2018Q2

REPORT INFORMATION
  Report Type: Spontaneous
  Country: US (occurrence: US)
  Receive Date: 20180323
  Receipt Date: 20180508
  Transmission Date: 20180711
  Serious: No
  Sender: FDA-Public Use
  Company Number: US-PFIZER INC-2018122439

PATIENT
  Age: 51 Year
  Sex: Female
  Weight: 140.1 kg

DRUGS (1)
  1. GABAPENTIN. [Suspect]
     Active Substance: GABAPENTIN
     Dosage: UNK (TWICE)

REACTIONS (2)
  - Nausea [Unknown]
  - Drug ineffective [Unknown]
